FAERS Safety Report 11760937 (Version 1)
Quarter: 2015Q4

REPORT INFORMATION
  Report Type: Report from Study
  Country: US (occurrence: US)
  Receive Date: 20151120
  Receipt Date: 20151120
  Transmission Date: 20160304
  Serious: No
  Sender: FDA-Public Use
  Company Number: US-CELGENEUS-USA-2015102945

PATIENT
  Age: 56 Year

DRUGS (2)
  1. DEXAMETHASONE. [Concomitant]
     Active Substance: DEXAMETHASONE
     Indication: PRODUCT USED FOR UNKNOWN INDICATION
     Route: 065
  2. THALOMID [Suspect]
     Active Substance: THALIDOMIDE
     Indication: PRODUCT USED FOR UNKNOWN INDICATION
     Route: 048

REACTIONS (7)
  - Muscle spasms [Unknown]
  - Fatigue [Unknown]
  - Neuropathy peripheral [Unknown]
  - Decreased activity [Unknown]
  - Musculoskeletal stiffness [Recovering/Resolving]
  - Pain [Unknown]
  - Myalgia [Unknown]
